FAERS Safety Report 18972367 (Version 4)
Quarter: 2021Q3

REPORT INFORMATION
  Report Type: Other
  Country: IT (occurrence: IT)
  Receive Date: 20210305
  Receipt Date: 20210711
  Transmission Date: 20211014
  Serious: Yes (Other)
  Sender: FDA-Public Use
  Company Number: IT-ROCHE-2775151

PATIENT
  Age: 61 Year
  Sex: Female

DRUGS (7)
  1. OCRELIZUMAB. [Suspect]
     Active Substance: OCRELIZUMAB
     Dosage: MOST RECENT DOSE RECEIVED ON 05/AUG/2020
     Route: 042
     Dates: start: 20180124
  2. TACHIPIRINA [Concomitant]
     Active Substance: ACETAMINOPHEN
  3. OCRELIZUMAB. [Suspect]
     Active Substance: OCRELIZUMAB
     Indication: PRIMARY PROGRESSIVE MULTIPLE SCLEROSIS
     Dosage: 7TH INFUSION (FIFTH CYCLE) OF COMPASSIONATE USE OCREVUS 600 MG HAS BEEN?PERFORMED.?05/AUG/2020, LAST
     Route: 042
     Dates: start: 20180124
  4. DIBASE [Concomitant]
     Active Substance: CHOLECALCIFEROL
     Dosage: 40 DROPS
  5. TRIMETON [Concomitant]
     Active Substance: CHLORPHENIRAMINE MALEATE
  6. FLEBOCORTID [Concomitant]
     Active Substance: HYDROCORTISONE SODIUM SUCCINATE
  7. NICOZID [Concomitant]
     Active Substance: ISONIAZID
     Dates: start: 20181229

REACTIONS (5)
  - Pancreatitis [Unknown]
  - Lipase increased [Unknown]
  - Amylase increased [Unknown]
  - Intraductal papillary-mucinous carcinoma of pancreas [Unknown]
  - Intraductal papillary mucinous neoplasm [Unknown]

NARRATIVE: CASE EVENT DATE: 20201012
